FAERS Safety Report 9790210 (Version 2)
Quarter: 2014Q2

REPORT INFORMATION
  Report Type: Spontaneous
  Country: FR (occurrence: FR)
  Receive Date: 20131231
  Receipt Date: 20140602
  Transmission Date: 20141212
  Serious: Yes (Hospitalization)
  Sender: FDA-Public Use
  Company Number: FR-JNJFOC-20131214070

PATIENT
  Age: 55 Year
  Sex: Male

DRUGS (9)
  1. STELARA [Suspect]
     Indication: PRODUCT USED FOR UNKNOWN INDICATION
     Route: 058
     Dates: start: 20130327, end: 20131002
  2. RAMIPRIL [Concomitant]
     Route: 065
     Dates: start: 2011
  3. TRIMEBUTINE [Concomitant]
     Route: 065
     Dates: start: 2011
  4. OMEPRAZOLE [Concomitant]
     Route: 065
     Dates: start: 2011
  5. HEXAQUINE [Concomitant]
     Route: 065
     Dates: start: 2011
  6. TAHOR [Concomitant]
     Route: 065
     Dates: start: 2011
  7. KARDEGIC [Concomitant]
     Route: 065
     Dates: start: 201301
  8. GAVISCON NOS [Concomitant]
     Route: 065
     Dates: start: 2011
  9. DOMPERIDONE [Concomitant]
     Route: 065
     Dates: start: 2011

REACTIONS (2)
  - Dysphonia [Recovered/Resolved]
  - Vocal cord disorder [Recovered/Resolved]
